FAERS Safety Report 4392908-0 (Version None)
Quarter: 2004Q3

REPORT INFORMATION
  Report Type: 
  Country: None (occurrence: None)
  Receive Date: 20040702
  Receipt Date: 20040622
  Transmission Date: 20050211
  Serious: Yes (Other)
  Sender: FDA-Public Use
  Company Number: 2004-02750

PATIENT
  Age: 71 Year
  Sex: Male

DRUGS (4)
  1. CHLORZOXAZONE [Suspect]
     Indication: BACK PAIN
     Dosage: UNKNOWN, ORAL
     Route: 048
  2. DIGOXIN [Concomitant]
  3. HYDROCHLOROTHIAZIDE [Concomitant]
  4. ACETYLSALICYLIC ACID SRT [Concomitant]

REACTIONS (2)
  - LEUKOCYTOCLASTIC VASCULITIS [None]
  - RENAL DISORDER [None]
